FAERS Safety Report 5338510-5 (Version None)
Quarter: 2007Q2

REPORT INFORMATION
  Report Type: 
  Country: None (occurrence: None)
  Receive Date: 20070322
  Receipt Date: 20060109
  Transmission Date: 20071010
  Serious: Yes (Other)
  Sender: FDA-Public Use
  Company Number: 200514743BCC

PATIENT
  Age: 34 Year
  Sex: Male
  Weight: 100.6985 kg

DRUGS (2)
  1. ALEVE (CAPLET) [Suspect]
     Indication: TOOTHACHE
     Dosage: 660 MG, ONCE, ORAL
     Route: 048
     Dates: start: 20051129
  2. ADVIL LIQUI-GELS [Suspect]
     Indication: TOOTHACHE
     Dosage: 1200 MG, ONCE, ORAL
     Route: 048
     Dates: start: 20051129

REACTIONS (2)
  - GASTRIC HAEMORRHAGE [None]
  - HAEMATOCHEZIA [None]
